FAERS Safety Report 10455656 (Version 3)
Quarter: 2014Q4

REPORT INFORMATION
  Report Type: Spontaneous
  Country: US (occurrence: US)
  Receive Date: 20140916
  Receipt Date: 20141205
  Transmission Date: 20150528
  Serious: No
  Sender: FDA-Public Use
  Company Number: US-ASTELLAS-2014US008958

PATIENT
  Age: 64 Year
  Sex: Male

DRUGS (10)
  1. XGEVA [Concomitant]
     Active Substance: DENOSUMAB
     Indication: BONE DISORDER
     Dosage: UNK UNK, MONTHLY
     Route: 065
  2. METRONIDAZOLE                      /00012502/ [Concomitant]
     Indication: RASH
     Dosage: UNK UNK, UNKNOWN FREQ.
     Route: 065
  3. CASODEX [Concomitant]
     Active Substance: BICALUTAMIDE
     Indication: PRODUCT USED FOR UNKNOWN INDICATION
     Dosage: UNK UNK, UNKNOWN FREQ.
     Route: 065
  4. LISINOPRIL AND HYDROCHLOROTHIAZIDE [Concomitant]
     Active Substance: HYDROCHLOROTHIAZIDE\LISINOPRIL
     Indication: BLOOD PRESSURE
     Dosage: 10-12, UNK
     Route: 065
  5. HYDROCORTISONE. [Concomitant]
     Active Substance: HYDROCORTISONE
     Indication: RASH
     Dosage: UNK UNK, UNKNOWN FREQ.
     Route: 065
  6. XTANDI [Suspect]
     Active Substance: ENZALUTAMIDE
     Indication: PROSTATE CANCER METASTATIC
     Route: 065
     Dates: start: 20140621
  7. ALEVE [Concomitant]
     Active Substance: NAPROXEN SODIUM
     Indication: PRODUCT USED FOR UNKNOWN INDICATION
     Route: 065
  8. CALCIUM 600 WITH VITAMIN D [Concomitant]
     Indication: BONE DISORDER
     Dosage: CALCIUN 600 MG AND VIT D 400 IV, UNKNOWN FREQ.
     Route: 042
  9. LUPRON [Concomitant]
     Active Substance: LEUPROLIDE ACETATE
     Indication: HORMONE THERAPY
     Dosage: UNK UNK, EVERY 3 MONTHS
     Route: 065
  10. APEXICON E [Concomitant]
     Active Substance: DIFLORASONE DIACETATE
     Indication: RASH
     Dosage: UNK UNK, UNKNOWN FREQ.
     Route: 065

REACTIONS (5)
  - Product physical issue [Unknown]
  - Constipation [Recovering/Resolving]
  - Abdominal distension [Recovering/Resolving]
  - Diverticulum [Recovering/Resolving]
  - Abdominal discomfort [Recovering/Resolving]

NARRATIVE: CASE EVENT DATE: 20140621
